FAERS Safety Report 5770843-0 (Version None)
Quarter: 2008Q2

REPORT INFORMATION
  Report Type: 
  Country: None (occurrence: None)
  Receive Date: 20080613
  Receipt Date: 20080516
  Transmission Date: 20081010
  Serious: No
  Sender: FDA-Public Use
  Company Number: US-ABBOTT-08P-163-0452245-00

PATIENT
  Sex: Male
  Weight: 78.542 kg

DRUGS (4)
  1. HUMIRA [Suspect]
     Indication: CROHN'S DISEASE
     Dosage: ONCE, LOADING DOSE
     Dates: start: 20080426, end: 20080426
  2. HUMIRA [Suspect]
     Dosage: ONCE, LOADING DOSE
     Dates: start: 20080512, end: 20080512
  3. ESOMEPRAZOLE MAGNESIUM [Concomitant]
     Indication: GASTROOESOPHAGEAL REFLUX DISEASE
     Route: 048
     Dates: start: 19980101
  4. LOMOTIL [Concomitant]
     Indication: CROHN'S DISEASE
     Route: 048
     Dates: start: 19970101

REACTIONS (7)
  - CHILLS [None]
  - COLD SWEAT [None]
  - DIZZINESS [None]
  - HEADACHE [None]
  - NAUSEA [None]
  - PYREXIA [None]
  - VOMITING [None]
